FAERS Safety Report 6549315-1 (Version None)
Quarter: 2010Q1

REPORT INFORMATION
  Report Type: 
  Country: None (occurrence: None)
  Receive Date: 20100125
  Receipt Date: 20100111
  Transmission Date: 20100710
  Serious: Yes (Other)
  Sender: FDA-Public Use
  Company Number: PHEH2008US02622

PATIENT
  Sex: Female

DRUGS (15)
  1. AREDIA [Suspect]
  2. ZOMETA [Suspect]
     Dosage: UNK
     Dates: start: 20030801, end: 20041101
  3. THALIDOMIDE [Concomitant]
     Dosage: UNK
     Dates: start: 20010101, end: 20030201
  4. COUMADIN [Concomitant]
  5. ACYCLOVIR [Concomitant]
     Dosage: 800 MG, BID
  6. OXYCONTIN [Concomitant]
     Dosage: 40 MG, BID
  7. FLEXERIL [Concomitant]
     Dosage: 10 MG, UNK
  8. PERCOCET [Concomitant]
     Dosage: UNK
  9. OXYCODONE HCL [Concomitant]
  10. AMOXICILLIN [Concomitant]
     Dosage: 500 MG, TID
  11. HYDROMORPHONE [Concomitant]
     Dosage: 4 MG, PRN
  12. VELCADE [Concomitant]
     Dosage: UNK
     Dates: start: 20070801, end: 20071001
  13. RADIATION [Concomitant]
  14. MELPHALAN HYDROCHLORIDE [Concomitant]
  15. FLUCONAZOLE [Concomitant]
     Dosage: 200 MG, DAILY

REACTIONS (30)
  - ABSCESS DRAINAGE [None]
  - ANXIETY [None]
  - AORTIC ARTERIOSCLEROSIS [None]
  - BONE DEBRIDEMENT [None]
  - BONE LESION [None]
  - BONE PAIN [None]
  - DEFORMITY [None]
  - DISEASE PROGRESSION [None]
  - EMOTIONAL DISTRESS [None]
  - EYE PAIN [None]
  - FOOT FRACTURE [None]
  - HIP SURGERY [None]
  - INFECTION [None]
  - JOINT EFFUSION [None]
  - LERICHE SYNDROME [None]
  - METASTATIC NEOPLASM [None]
  - MONOCYTOSIS [None]
  - NEUROPATHY PERIPHERAL [None]
  - OSTEOMYELITIS CHRONIC [None]
  - OSTEONECROSIS [None]
  - OSTEOPENIA [None]
  - OSTEOPOROSIS [None]
  - PAIN [None]
  - PAIN IN EXTREMITY [None]
  - PERIPHERAL VASCULAR DISORDER [None]
  - PLASMACYTOMA [None]
  - STEM CELL TRANSPLANT [None]
  - SURGERY [None]
  - TOOTH EXTRACTION [None]
  - TOOTH LOSS [None]
